FAERS Safety Report 5412451-7 (Version None)
Quarter: 2007Q3

REPORT INFORMATION
  Report Type: 
  Country: None (occurrence: None)
  Receive Date: 20070809
  Receipt Date: 20070723
  Transmission Date: 20080115
  Serious: No
  Sender: FDA-Public Use
  Company Number: CIO07011865

PATIENT
  Age: 50 Year
  Sex: Female
  Weight: 77.1 kg

DRUGS (1)
  1. CREST WHITENING EXPRESSIONS, CINNAMON RUSH FLAVOR (SODIUM FLUORIDE .24 [Suspect]
     Dosage: 1 APPLIC, 1 ONLY FOR 1 DAY, INTRAORAL
     Route: 048
     Dates: start: 20070720, end: 20070720

REACTIONS (7)
  - GENERALISED ERYTHEMA [None]
  - HYPERSENSITIVITY [None]
  - ORAL PRURITUS [None]
  - PARAESTHESIA ORAL [None]
  - PRURITUS GENERALISED [None]
  - STOMATITIS [None]
  - SWOLLEN TONGUE [None]
